FAERS Safety Report 14133643 (Version 2)
Quarter: 2018Q1

REPORT INFORMATION
  Report Type: Report from Study
  Country: BR (occurrence: BR)
  Receive Date: 20171026
  Receipt Date: 20180130
  Transmission Date: 20180508
  Serious: Yes (Death, Hospitalization)
  Sender: FDA-Public Use
  Company Number: PHHY2017BR156245

PATIENT
  Age: 75 Year
  Sex: Female
  Weight: 60 kg

DRUGS (1)
  1. ACLASTA [Suspect]
     Active Substance: ZOLEDRONIC ACID
     Indication: OSTEOPOROSIS
     Dosage: 1 DF (5MG/100ML), Q12MO
     Route: 042
     Dates: start: 20170929, end: 20170929

REACTIONS (8)
  - Septic shock [Fatal]
  - Dysuria [Unknown]
  - Concomitant disease aggravated [Fatal]
  - Cardio-respiratory arrest [Fatal]
  - Renal disorder [Fatal]
  - Urinary tract infection [Unknown]
  - Hypovolaemic shock [Fatal]
  - Internal haemorrhage [Unknown]

NARRATIVE: CASE EVENT DATE: 20171120
